FAERS Safety Report 11133606 (Version 1)
Quarter: 2015Q2

REPORT INFORMATION
  Report Type: Spontaneous
  Country: SI (occurrence: SI)
  Receive Date: 20150523
  Receipt Date: 20150523
  Transmission Date: 20150821
  Serious: Yes (Hospitalization, Other)
  Sender: FDA-Public Use
  Company Number: SI-B.I. PHARMACEUTICALS,INC./RIDGEFIELD-2015-BI-26040GD

PATIENT
  Sex: Female

DRUGS (6)
  1. CLONIDINE. [Suspect]
     Active Substance: CLONIDINE
     Indication: RENAL HYPERTENSION
     Dosage: 0.4 MG
     Route: 065
  2. METOPROLOL [Suspect]
     Active Substance: METOPROLOL
     Indication: RENAL HYPERTENSION
     Dosage: 100 MG
     Route: 065
  3. FUROSEMIDE. [Suspect]
     Active Substance: FUROSEMIDE
     Indication: RENAL HYPERTENSION
     Dosage: 80 MG
     Route: 065
  4. AMLODIPINE W/HYDROCHLOROTHIAZIDE/VALSARTAN [Suspect]
     Active Substance: AMLODIPINE BESYLATE\HYDROCHLOROTHIAZIDE\VALSARTAN
     Indication: RENAL HYPERTENSION
     Route: 065
  5. DOXAZOSIN [Suspect]
     Active Substance: DOXAZOSIN\DOXAZOSIN MESYLATE
     Indication: RENAL HYPERTENSION
     Dosage: 16 MG
     Route: 065
  6. NIFEDIPINE. [Suspect]
     Active Substance: NIFEDIPINE
     Indication: RENAL HYPERTENSION
     Dosage: 40 MG
     Route: 065

REACTIONS (4)
  - Blood pressure increased [Unknown]
  - Glaucoma [Unknown]
  - Product use issue [Unknown]
  - Headache [Unknown]
